FAERS Safety Report 6183007-6 (Version None)
Quarter: 2009Q2

REPORT INFORMATION
  Report Type: 
  Country: None (occurrence: None)
  Receive Date: 20090507
  Receipt Date: 20090430
  Transmission Date: 20091009
  Serious: Yes (Hospitalization)
  Sender: FDA-Public Use
  Company Number: CH-AVENTIS-200914469GDDC

PATIENT
  Age: 67 Year
  Sex: Male

DRUGS (2)
  1. TAXOTERE [Suspect]
     Route: 042
     Dates: start: 20090129, end: 20090423
  2. CETUXIMAB [Suspect]
     Route: 042
     Dates: start: 20090129, end: 20090423

REACTIONS (2)
  - PYREXIA [None]
  - URINARY RETENTION [None]
